FAERS Safety Report 17977215 (Version 4)
Quarter: 2020Q4

REPORT INFORMATION
  Report Type: Report from Study
  Country: US (occurrence: US)
  Receive Date: 20200702
  Receipt Date: 20201022
  Transmission Date: 20210113
  Serious: No
  Sender: FDA-Public Use
  Company Number: NVSC2020US186090

PATIENT
  Sex: Female

DRUGS (2)
  1. AFINITOR [Suspect]
     Active Substance: EVEROLIMUS
     Indication: ANGIOMYOLIPOMA
     Dosage: 5 MG, QD
     Route: 048
     Dates: start: 20200629
  2. AFINITOR [Suspect]
     Active Substance: EVEROLIMUS
     Dosage: 5 MG
     Route: 048
     Dates: start: 20200630, end: 20200821

REACTIONS (9)
  - Gastrooesophageal reflux disease [Unknown]
  - Cough [Unknown]
  - Vomiting [Unknown]
  - Back pain [Unknown]
  - Insomnia [Unknown]
  - Fluid retention [Unknown]
  - Nocturia [Unknown]
  - Feeling abnormal [Unknown]
  - Abdominal distension [Unknown]
